FAERS Safety Report 7979278-3 (Version None)
Quarter: 2011Q4

REPORT INFORMATION
  Report Type: 
  Country: None (occurrence: None)
  Receive Date: 20111214
  Receipt Date: 20111214
  Transmission Date: 20120403
  Serious: No
  Sender: FDA-Public Use
  Company Number: None

PATIENT
  Age: 44 Year
  Sex: Male
  Weight: 76 kg

DRUGS (2)
  1. MEGALIS [Concomitant]
     Dosage: ONE TABLET
     Route: 048
  2. TADALAFIL [Suspect]
     Indication: ERECTILE DYSFUNCTION
     Dosage: TWO TABS
     Route: 048
     Dates: start: 20110420, end: 20110720

REACTIONS (1)
  - BLINDNESS UNILATERAL [None]
